FAERS Safety Report 8218918-0 (Version None)
Quarter: 2012Q1

REPORT INFORMATION
  Report Type: 
  Country: None (occurrence: None)
  Receive Date: 20120306
  Receipt Date: 20110804
  Transmission Date: 20120608
  Serious: Yes (Other)
  Sender: FDA-Public Use
  Company Number: US-006586

PATIENT
  Age: 74 Year
  Sex: Male

DRUGS (3)
  1. ISOVUE-200 [Suspect]
     Indication: MUSCULAR WEAKNESS
     Dosage: 20ML ONCE INTRATHECAL
     Route: 037
     Dates: start: 20110728, end: 20110728
  2. ISOVUE-200 [Suspect]
     Indication: BACK PAIN
     Dosage: 20ML ONCE INTRATHECAL
     Route: 037
     Dates: start: 20110728, end: 20110728
  3. ISOVUE-200 [Suspect]
     Indication: SPINAL MYELOGRAM
     Dosage: 20ML ONCE INTRATHECAL
     Route: 037
     Dates: start: 20110728, end: 20110728

REACTIONS (1)
  - LOSS OF CONSCIOUSNESS [None]
